FAERS Safety Report 9262434 (Version 2)
Quarter: 2013Q2

REPORT INFORMATION
  Report Type: Spontaneous
  Country: DE (occurrence: None)
  Receive Date: 20130425
  Receipt Date: 20130603
  Transmission Date: 20140414
  Serious: Yes (Hospitalization, Other)
  Sender: FDA-Public Use
  Company Number: 1304-535

PATIENT
  Age: 55 Year
  Sex: Male

DRUGS (5)
  1. EYLEA (AFLIBERCEPT)(INJECTION)(AFLIBERCEPT) [Suspect]
     Indication: AGE-RELATED MACULAR DEGENERATION
     Route: 031
     Dates: start: 20130305, end: 20130305
  2. ADOAIR (SERETIDE) [Concomitant]
  3. ADALAT CR (NIFEDIPINE) [Concomitant]
  4. TANATRIL (IMIDAPRIL HYDROCHLORIDE) [Concomitant]
  5. FLUITRAN (TRICHLORMETHIAZIDE) [Concomitant]

REACTIONS (4)
  - Orthostatic hypotension [None]
  - Loss of consciousness [None]
  - Dyspnoea [None]
  - Muscle spasms [None]
